FAERS Safety Report 6670853-5 (Version None)
Quarter: 2010Q2

REPORT INFORMATION
  Report Type: 
  Country: None (occurrence: None)
  Receive Date: 20100406
  Receipt Date: 20100406
  Transmission Date: 20101027
  Serious: No
  Sender: FDA-Public Use
  Company Number: None

PATIENT
  Sex: Female
  Weight: 72 kg

DRUGS (2)
  1. CARBOPLATIN [Suspect]
     Dosage: 477.9 MG
  2. TAXOL [Concomitant]
     Dosage: 313.2 MG

REACTIONS (4)
  - ANAEMIA [None]
  - ARTHRITIS BACTERIAL [None]
  - BLOOD POTASSIUM DECREASED [None]
  - STAPHYLOCOCCAL SEPSIS [None]
